FAERS Safety Report 23191630 (Version 1)
Quarter: 2023Q4

REPORT INFORMATION
  Report Type: Report from Study
  Country: CA (occurrence: CA)
  Receive Date: 20231116
  Receipt Date: 20231116
  Transmission Date: 20240110
  Serious: Yes (Other)
  Sender: FDA-Public Use
  Company Number: CA-BEH-2023164975

PATIENT
  Age: 68 Year
  Sex: Female
  Weight: 58 kg

DRUGS (15)
  1. HIZENTRA [Suspect]
     Active Substance: HUMAN IMMUNOGLOBULIN G
     Indication: Secondary immunodeficiency
     Dosage: 6 GRAM, QW
     Route: 065
     Dates: start: 20230529
  2. TYLENOL [Concomitant]
     Active Substance: ACETAMINOPHEN
  3. HYDROMORPHONE [Concomitant]
     Active Substance: HYDROMORPHONE
  4. AMOXICILLIN [Concomitant]
     Active Substance: AMOXICILLIN
     Indication: Urinary tract infection
  5. PANTOPRAZOLE [Concomitant]
     Active Substance: PANTOPRAZOLE
  6. HYDROMORPHONE [Concomitant]
     Active Substance: HYDROMORPHONE
  7. ZOPICLONE [Concomitant]
     Active Substance: ZOPICLONE
  8. FOSAMAX [Concomitant]
     Active Substance: ALENDRONATE SODIUM
  9. IVABRADINE [Concomitant]
     Active Substance: IVABRADINE
  10. VITAMIN D NOS [Concomitant]
     Active Substance: VITAMIN D NOS
  11. MAGNESIUM CITRATE [Concomitant]
     Active Substance: MAGNESIUM CITRATE
  12. BISOPROLOL [Concomitant]
     Active Substance: BISOPROLOL\BISOPROLOL FUMARATE
  13. APIXABAN [Concomitant]
     Active Substance: APIXABAN
  14. SENOKOT [Concomitant]
     Active Substance: SENNOSIDES
  15. LORAZEPAM [Concomitant]
     Active Substance: LORAZEPAM
     Dosage: UNK, PRN

REACTIONS (8)
  - Headache [Recovering/Resolving]
  - Oral pain [Unknown]
  - Pain in jaw [Unknown]
  - Headache [Unknown]
  - Stress [Unknown]
  - Dysgeusia [Not Recovered/Not Resolved]
  - Gallbladder enlargement [Unknown]
  - Abdominal pain upper [Recovering/Resolving]

NARRATIVE: CASE EVENT DATE: 20231001
